FAERS Safety Report 17881586 (Version 1)
Quarter: 2020Q2

REPORT INFORMATION
  Report Type: Spontaneous
  Country: US (occurrence: US)
  Receive Date: 20200610
  Receipt Date: 20200610
  Transmission Date: 20200714
  Serious: No
  Sender: FDA-Public Use
  Company Number: US-SA-2020SA146287

PATIENT

DRUGS (2)
  1. FLONASE SENSIMIST ALLERGY RELIEF [Concomitant]
     Active Substance: FLUTICASONE FUROATE
     Indication: ASTHMA
  2. DUPIXENT [Suspect]
     Active Substance: DUPILUMAB
     Indication: ASTHMA

REACTIONS (7)
  - Sleep disorder [Unknown]
  - Upper-airway cough syndrome [Unknown]
  - Nasal polypectomy [Unknown]
  - Dyspnoea [Unknown]
  - Rhinorrhoea [Unknown]
  - Anosmia [Unknown]
  - Nasal congestion [Unknown]
